FAERS Safety Report 9506755 (Version 1)
Quarter: 2013Q3

REPORT INFORMATION
  Report Type: Spontaneous
  Country: CZ (occurrence: None)
  Receive Date: 20130904
  Receipt Date: 20130904
  Transmission Date: 20140515
  Serious: Yes (Hospitalization)
  Sender: FDA-Public Use
  Company Number: 2013P1018790

PATIENT
  Age: 35 Year
  Sex: Female

DRUGS (3)
  1. CLINDAMYCIN [Suspect]
     Indication: ENDOMETRITIS
  2. GENTAMICIN [Suspect]
     Indication: ENDOMETRITIS
  3. CEFOTAXIME [Suspect]
     Indication: INFECTION

REACTIONS (4)
  - Toxic epidermal necrolysis [None]
  - Toxic shock syndrome [None]
  - Pulmonary oedema [None]
  - Pulmonary embolism [None]
